FAERS Safety Report 6680384-4 (Version None)
Quarter: 2010Q2

REPORT INFORMATION
  Report Type: 
  Country: None (occurrence: None)
  Receive Date: 20100412
  Receipt Date: 20100402
  Transmission Date: 20101027
  Serious: Yes (Other)
  Sender: FDA-Public Use
  Company Number: 97738

PATIENT
  Age: 58 Year
  Sex: Female
  Weight: 89.3586 kg

DRUGS (10)
  1. ADRIAMYCIN PFS [Suspect]
     Indication: MANTLE CELL LYMPHOMA
     Dosage: 32MG/IV X 3 DAYS
     Route: 042
     Dates: start: 20100401, end: 20100403
  2. ACYCLOVIR [Concomitant]
  3. MIRALAX [Concomitant]
  4. PRILOSEC [Concomitant]
  5. ADAP [Concomitant]
  6. ZOFRAN [Concomitant]
  7. LASIX [Concomitant]
  8. DECADRON [Concomitant]
  9. HUMALOG [Concomitant]
  10. LANTUS [Concomitant]

REACTIONS (3)
  - DRUG DISPENSING ERROR [None]
  - EXPIRED DRUG ADMINISTERED [None]
  - MEDICATION ERROR [None]
